FAERS Safety Report 22320107 (Version 1)
Quarter: 2023Q2

REPORT INFORMATION
  Report Type: Report from Study
  Country: US (occurrence: US)
  Receive Date: 20230515
  Receipt Date: 20230515
  Transmission Date: 20230721
  Serious: Yes (Other)
  Sender: FDA-Public Use
  Company Number: US-ABBVIE-4330681

PATIENT
  Age: 49 Year
  Sex: Female
  Weight: 72.574 kg

DRUGS (13)
  1. RINVOQ [Suspect]
     Active Substance: UPADACITINIB
     Indication: Rheumatoid arthritis
     Route: 048
     Dates: start: 20210501
  2. METFORMIN [Suspect]
     Active Substance: METFORMIN HYDROCHLORIDE
     Indication: Diabetes mellitus
     Dates: start: 2018
  3. VITAMIN B12 [Concomitant]
     Active Substance: CYANOCOBALAMIN
     Indication: Vitamin supplementation
     Dates: start: 2018
  4. INLOSEP [Concomitant]
     Indication: Dyspepsia
     Dates: start: 2000
  5. ZYRTEC [Concomitant]
     Active Substance: CETIRIZINE HYDROCHLORIDE
     Indication: Seasonal allergy
     Dates: start: 2000
  6. Gabpentin [Concomitant]
     Indication: Sciatica
     Dosage: TIME INTERVAL: 0.33333333 DAYS
     Dates: start: 2020
  7. PLAVIX [Concomitant]
     Active Substance: CLOPIDOGREL BISULFATE
     Indication: Anticoagulant therapy
     Dates: start: 2014
  8. CRESTOR [Concomitant]
     Active Substance: ROSUVASTATIN CALCIUM
     Indication: Blood cholesterol
     Dates: start: 2014
  9. VITAMIN D3 [Concomitant]
     Active Substance: CHOLECALCIFEROL
     Indication: Vitamin supplementation
  10. METOPROLOL TARTRATE [Suspect]
     Active Substance: METOPROLOL TARTRATE
     Indication: Heart rate increased
     Dates: start: 2019
  11. FENOFIBRATE [Concomitant]
     Active Substance: FENOFIBRATE
     Indication: Diabetes mellitus
     Dates: start: 2020
  12. ASPIRIN [Concomitant]
     Active Substance: ASPIRIN
     Indication: Anticoagulant therapy
  13. Himepiride [Concomitant]
     Indication: Diabetes mellitus
     Dates: start: 2020

REACTIONS (4)
  - Dry gangrene [Unknown]
  - Thromboangiitis obliterans [Not Recovered/Not Resolved]
  - Pain [Not Recovered/Not Resolved]
  - Gangrene [Unknown]

NARRATIVE: CASE EVENT DATE: 20230201
